FAERS Safety Report 6994463-5 (Version None)
Quarter: 2010Q3

REPORT INFORMATION
  Report Type: 
  Country: None (occurrence: None)
  Receive Date: 20100917
  Receipt Date: 20100909
  Transmission Date: 20110219
  Serious: Yes (Hospitalization)
  Sender: FDA-Public Use
  Company Number: FR-JNJFOC-20100903154

PATIENT
  Age: 82 Year
  Sex: Male

DRUGS (12)
  1. TAVANIC [Suspect]
     Indication: LUNG INFECTION
     Route: 048
  2. CALCIPARINE [Suspect]
     Indication: PRODUCT USED FOR UNKNOWN INDICATION
     Route: 058
  3. KARDEGIC [Suspect]
     Indication: ARTERIOSCLEROSIS OBLITERANS
     Route: 048
  4. PLAVIX [Suspect]
     Indication: ARTERIOSCLEROSIS OBLITERANS
     Route: 048
  5. PRAXILENE [Suspect]
     Indication: ARTERIOSCLEROSIS OBLITERANS
     Route: 048
  6. BUMEX [Suspect]
     Indication: HYPERTENSION
     Route: 048
  7. ROCEPHIN [Suspect]
     Indication: LUNG INFECTION
     Route: 048
  8. ADVIL LIQUI-GELS [Suspect]
     Indication: PRODUCT USED FOR UNKNOWN INDICATION
     Route: 048
  9. ELISOR [Suspect]
     Indication: PRODUCT USED FOR UNKNOWN INDICATION
     Route: 048
  10. TAREG [Suspect]
     Indication: HYPERTENSION
     Route: 048
  11. ADANCOR [Concomitant]
     Indication: PRODUCT USED FOR UNKNOWN INDICATION
     Route: 065
  12. INSULATARD INSULIN [Concomitant]
     Indication: PRODUCT USED FOR UNKNOWN INDICATION
     Route: 065

REACTIONS (3)
  - HAEMATEMESIS [None]
  - MELAENA [None]
  - RENAL FAILURE ACUTE [None]
